FAERS Safety Report 4462003-0 (Version None)
Quarter: 2004Q3

REPORT INFORMATION
  Report Type: 
  Country: None (occurrence: None)
  Receive Date: 20040923
  Receipt Date: 20040914
  Transmission Date: 20050211
  Serious: No
  Sender: FDA-Public Use
  Company Number: 04H-056-0249524-00

PATIENT
  Age: 20 Year
  Sex: Male
  Weight: 59 kg

DRUGS (2)
  1. ISOPROTERENOL HCL [Suspect]
     Indication: HEART TRANSPLANT
     Dates: start: 20021219
  2. ANTITHYMOCYTE IMMUNOGLOBULIN [Suspect]
     Indication: HEART TRANSPLANT
     Dosage: 150 MG, PER ORAL
     Route: 048
     Dates: start: 20021219, end: 20021221

REACTIONS (2)
  - CIRCULATORY COLLAPSE [None]
  - VASODILATATION [None]
